FAERS Safety Report 18644169 (Version 1)
Quarter: 2020Q4

REPORT INFORMATION
  Report Type: Spontaneous
  Country: US (occurrence: US)
  Receive Date: 20201221
  Receipt Date: 20201221
  Transmission Date: 20210114
  Serious: Yes (Disabling, Other)
  Sender: FDA-Public Use
  Company Number: US-PURDUE-USA-2020-0180323

PATIENT
  Sex: Male

DRUGS (6)
  1. DILAUDID [Suspect]
     Active Substance: HYDROMORPHONE HYDROCHLORIDE
     Indication: ARTHRITIS
     Dosage: UNKNOWN
     Route: 048
  2. HYDROMORPHONE TABLET (RHODES) [Suspect]
     Active Substance: HYDROMORPHONE
     Indication: ARTHRITIS
  3. OXYCONTIN [Suspect]
     Active Substance: OXYCODONE HYDROCHLORIDE
     Indication: ANKYLOSING SPONDYLITIS
  4. OXYCONTIN [Suspect]
     Active Substance: OXYCODONE HYDROCHLORIDE
     Indication: ARTHRITIS
     Dosage: UNKNOWN
     Route: 048
  5. HYDROMORPHONE TABLET (RHODES) [Suspect]
     Active Substance: HYDROMORPHONE
     Indication: ANKYLOSING SPONDYLITIS
     Dosage: UNKNOWN
     Route: 048
  6. DILAUDID [Suspect]
     Active Substance: HYDROMORPHONE HYDROCHLORIDE
     Indication: ANKYLOSING SPONDYLITIS

REACTIONS (6)
  - Drug dependence [Unknown]
  - Overdose [Unknown]
  - Weight decreased [Unknown]
  - Physical disability [Unknown]
  - Cardiac disorder [Unknown]
  - Cardiac aneurysm [Unknown]
